FAERS Safety Report 8932916 (Version 1)
Quarter: 2012Q4

REPORT INFORMATION
  Report Type: Spontaneous
  Country: IN (occurrence: None)
  Receive Date: 20121119
  Receipt Date: 20121119
  Transmission Date: 20130627
  Serious: Yes (Other)
  Sender: FDA-Public Use
  Company Number: AUR-APL-2012-04825

PATIENT
  Age: 50 Year
  Sex: Male

DRUGS (4)
  1. TENOFOVIR [Suspect]
     Indication: ANTIRETROVIRAL THERAPY
  2. STAVUDINE [Suspect]
     Indication: ANTIRETROVIRAL THERAPY
  3. LAMIVUDINE (LAMIVUDINE) [Concomitant]
  4. NEVIRAPINE (NEVIRAPINE) [Concomitant]

REACTIONS (9)
  - CD4 lymphocytes decreased [None]
  - Economic problem [None]
  - Therapy cessation [None]
  - Skin lesion [None]
  - Neuropathy peripheral [None]
  - Anaemia macrocytic [None]
  - Thrombocytopenia [None]
  - Photosensitivity reaction [None]
  - Pyrexia [None]
